FAERS Safety Report 22264960 (Version 1)
Quarter: 2023Q2

REPORT INFORMATION
  Report Type: Spontaneous
  Country: US (occurrence: US)
  Receive Date: 20230428
  Receipt Date: 20230428
  Transmission Date: 20230721
  Serious: No
  Sender: FDA-Public Use
  Company Number: US-BIOGEN-2019BI00729523

PATIENT
  Age: 55 Year
  Sex: Male

DRUGS (2)
  1. TECFIDERA [Suspect]
     Active Substance: DIMETHYL FUMARATE
     Indication: Multiple sclerosis
     Route: 050
     Dates: start: 20190215
  2. TECFIDERA [Suspect]
     Active Substance: DIMETHYL FUMARATE
     Route: 050
     Dates: start: 202004

REACTIONS (13)
  - Pain in extremity [Not Recovered/Not Resolved]
  - Back pain [Not Recovered/Not Resolved]
  - Stress [Not Recovered/Not Resolved]
  - Head injury [Unknown]
  - Headache [Unknown]
  - Loss of control of legs [Unknown]
  - Fall [Recovered/Resolved]
  - Balance disorder [Unknown]
  - Dizziness [Unknown]
  - Cough [Unknown]
  - Bladder dysfunction [Unknown]
  - Defaecation disorder [Unknown]
  - Back disorder [Unknown]

NARRATIVE: CASE EVENT DATE: 20220620
